FAERS Safety Report 4366733-0 (Version None)
Quarter: 2004Q2

REPORT INFORMATION
  Report Type: 
  Country: None (occurrence: None)
  Receive Date: 20040527
  Receipt Date: 20040520
  Transmission Date: 20050107
  Serious: Yes (Life-Threatening)
  Sender: FDA-Public Use
  Company Number: JP-MERCK-0405USA01696

PATIENT
  Age: 78 Year
  Sex: Male

DRUGS (1)
  1. PRIMAXIN [Suspect]
     Indication: TONSILLITIS
     Route: 041
     Dates: start: 20040511, end: 20040512

REACTIONS (1)
  - HEPATITIS FULMINANT [None]
